FAERS Safety Report 8352471-6 (Version None)
Quarter: 2012Q2

REPORT INFORMATION
  Report Type: 
  Country: None (occurrence: None)
  Receive Date: 20120511
  Receipt Date: 20120507
  Transmission Date: 20120825
  Serious: Yes (Other)
  Sender: FDA-Public Use
  Company Number: PHHY2011AU56692

PATIENT
  Sex: Female

DRUGS (1)
  1. ZOLEDRONOC ACID [Suspect]
     Dosage: 5 MG, UNK
     Route: 042
     Dates: start: 20110621

REACTIONS (6)
  - PALLOR [None]
  - BLOOD PRESSURE ABNORMAL [None]
  - SOMNOLENCE [None]
  - EYE DISORDER [None]
  - PRESYNCOPE [None]
  - PULSE PRESSURE DECREASED [None]
